FAERS Safety Report 5084909-4 (Version None)
Quarter: 2006Q3

REPORT INFORMATION
  Report Type: 
  Country: None (occurrence: None)
  Receive Date: 20060821
  Receipt Date: 20060807
  Transmission Date: 20061208
  Serious: Yes (Other)
  Sender: FDA-Public Use
  Company Number: ES-BOEHRINGER INGELHEIM PHARMACEUTICALS, INC.-2006-DE-04118GD

PATIENT

DRUGS (2)
  1. NEVIRAPINE [Suspect]
     Indication: HIV INFECTION
  2. ANTIRETROVIRAL DRUGS [Suspect]
     Indication: HIV INFECTION

REACTIONS (2)
  - DISEASE PROGRESSION [None]
  - HEPATIC FIBROSIS [None]
